FAERS Safety Report 9735575 (Version 2)
Quarter: 2013Q4

REPORT INFORMATION
  Report Type: Spontaneous
  Country: US (occurrence: US)
  Receive Date: 20131206
  Receipt Date: 20131206
  Transmission Date: 20140711
  Serious: Yes (Other)
  Sender: FDA-Public Use
  Company Number: US-GILEAD-2009-0023972

PATIENT
  Sex: Female
  Weight: 49.44 kg

DRUGS (15)
  1. LETAIRIS [Suspect]
     Indication: PULMONARY ARTERIAL HYPERTENSION
     Route: 048
     Dates: start: 20090803
  2. OXYGEN [Concomitant]
  3. WARFARIN [Concomitant]
  4. ATENOLOL [Concomitant]
  5. SPIRONOLACTONE [Concomitant]
  6. TORSEMIDE [Concomitant]
  7. ZAROXOLYN [Concomitant]
  8. DIGOXIN [Concomitant]
  9. SIMVASTATIN [Concomitant]
  10. AMBIEN [Concomitant]
  11. TYLENOL [Concomitant]
  12. ULTRACET [Concomitant]
  13. LEVOTHYROXINE [Concomitant]
  14. ASPIRIN [Concomitant]
  15. IRON [Concomitant]

REACTIONS (5)
  - Left ventricular failure [Unknown]
  - Migraine [Not Recovered/Not Resolved]
  - Dizziness [Unknown]
  - Epistaxis [Unknown]
  - Fluid retention [Unknown]
